FAERS Safety Report 4373421-3 (Version None)
Quarter: 2004Q2

REPORT INFORMATION
  Report Type: 
  Country: None (occurrence: None)
  Receive Date: 20040603
  Receipt Date: 20040525
  Transmission Date: 20050107
  Serious: Yes (Other)
  Sender: FDA-Public Use
  Company Number: 2004215778GB

PATIENT
  Sex: Female

DRUGS (2)
  1. CYTOTEC [Suspect]
     Indication: ABORTION
     Dosage: ORAL
     Route: 048
  2. MIFEPRISTONE (MIFEPRISTONE) TABLET [Suspect]
     Indication: ABORTION
     Dosage: ORAL
     Route: 048

REACTIONS (1)
  - CIRCULATORY COLLAPSE [None]
